FAERS Safety Report 19389594 (Version 1)
Quarter: 2021Q2

REPORT INFORMATION
  Report Type: Spontaneous
  Country: GB (occurrence: GB)
  Receive Date: 20210608
  Receipt Date: 20210608
  Transmission Date: 20210717
  Serious: Yes (Hospitalization, Other)
  Sender: FDA-Public Use
  Company Number: GB-MYLANLABS-2021M1032479

PATIENT
  Age: 32 Year
  Sex: Female

DRUGS (7)
  1. EXEMESTANE. [Concomitant]
     Active Substance: EXEMESTANE
     Dosage: UNK
  2. PALBOCICLIB [Suspect]
     Active Substance: PALBOCICLIB
     Indication: PRODUCT USED FOR UNKNOWN INDICATION
     Dosage: 100 MILLIGRAM, CYCLE (ONCE DAILY 3 WEEKS ON AND 1 WEEK OFF)
  3. ZOLADEX [Suspect]
     Active Substance: GOSERELIN ACETATE
     Indication: PRODUCT USED FOR UNKNOWN INDICATION
     Dosage: 3.6 MILLIGRAM, CYCLE (3.6 MG, CYCLIC (4 WEEKLY))
     Route: 058
     Dates: start: 201903
  4. METHOTREXATE. [Concomitant]
     Active Substance: METHOTREXATE
     Dosage: UNK
     Route: 037
  5. PALBOCICLIB [Suspect]
     Active Substance: PALBOCICLIB
     Dosage: 125 MILLIGRAM, CYCLE (125 MG, CYCLIC (ONCE DAILY, 3 WEEKS ON AND 1 WEEK OFF))
     Dates: start: 201903
  6. DENOSUMAB [Concomitant]
     Active Substance: DENOSUMAB
     Dosage: UNK
  7. LETROZOLE. [Suspect]
     Active Substance: LETROZOLE
     Indication: PRODUCT USED FOR UNKNOWN INDICATION
     Dosage: 2.5 MILLIGRAM, QD (2.5 MG, 1X/DAY)

REACTIONS (6)
  - Tinnitus [Recovered/Resolved]
  - Ear pain [Unknown]
  - Loss of consciousness [Unknown]
  - Neoplasm progression [Unknown]
  - Fatigue [Unknown]
  - Neutropenia [Unknown]
